FAERS Safety Report 10818482 (Version 1)
Quarter: 2015Q1

REPORT INFORMATION
  Report Type: Spontaneous
  Country: SK (occurrence: None)
  Receive Date: 20150213
  Receipt Date: 20150213
  Transmission Date: 20150721
  Serious: Yes (Other)
  Sender: FDA-Public Use
  Company Number: 2015BI014618

PATIENT
  Age: 38 Year
  Sex: Female

DRUGS (2)
  1. GLATIRAMER ACETATE. [Concomitant]
     Active Substance: GLATIRAMER ACETATE
  2. TYSABRI [Suspect]
     Active Substance: NATALIZUMAB
     Indication: PRODUCT USED FOR UNKNOWN INDICATION
     Route: 042
     Dates: start: 20101216

REACTIONS (3)
  - Abortion induced [None]
  - Pregnancy [None]
  - Maternal exposure during pregnancy [None]
